FAERS Safety Report 7957898-X (Version None)
Quarter: 2011Q4

REPORT INFORMATION
  Report Type: 
  Country: None (occurrence: None)
  Receive Date: 20111205
  Receipt Date: 20111201
  Transmission Date: 20120403
  Serious: Yes (Death, Life-Threatening)
  Sender: FDA-Public Use
  Company Number: GR-B.I. PHARMACEUTICALS,INC./RIDGEFIELD-2011-EU-00559GB

PATIENT
  Age: 64 Year
  Sex: Male

DRUGS (5)
  1. UNSPECIFIED DRUGS FOR DIABETES MELLITUS [Concomitant]
     Indication: DIABETES MELLITUS
     Dates: end: 20111101
  2. PRADAXA [Suspect]
     Indication: ATRIAL FIBRILLATION
     Dosage: 220 MG
     Route: 048
     Dates: start: 20111101, end: 20111101
  3. SINTROM [Concomitant]
     Indication: ATRIAL FIBRILLATION
     Dates: end: 20111101
  4. UNSPECIFIED DRUGS FOR HYPERTENSION [Concomitant]
     Indication: HYPERTENSION
     Dates: end: 20111101
  5. UNSPECIFIED DRUGS FOR HYPERCHOLESTEROLEMIA [Concomitant]
     Indication: HYPERCHOLESTEROLAEMIA
     Dates: end: 20111101

REACTIONS (2)
  - CEREBROVASCULAR ACCIDENT [None]
  - RED BLOOD CELL COUNT DECREASED [None]
